FAERS Safety Report 7278115-2 (Version None)
Quarter: 2011Q1

REPORT INFORMATION
  Report Type: 
  Country: None (occurrence: None)
  Receive Date: 20110207
  Receipt Date: 20110201
  Transmission Date: 20110831
  Serious: Yes (Death, Hospitalization)
  Sender: FDA-Public Use
  Company Number: A0758035A

PATIENT
  Age: 41 Year
  Sex: Male
  Weight: 104.5 kg

DRUGS (9)
  1. ACTOS [Concomitant]
  2. LIPITOR [Concomitant]
  3. GLIMEPIRIDE [Concomitant]
  4. QUINAPRIL [Concomitant]
  5. AVANDIA [Suspect]
     Dosage: 8MG PER DAY
     Route: 048
     Dates: start: 20020501, end: 20060321
  6. VYTORIN [Concomitant]
  7. AMARYL [Concomitant]
  8. AVANDAMET [Suspect]
     Route: 048
     Dates: start: 20060101, end: 20060201
  9. GLUCOTROL XL [Concomitant]

REACTIONS (6)
  - CARDIAC ARREST [None]
  - DYSPNOEA [None]
  - CHEST PAIN [None]
  - CORONARY ARTERY OCCLUSION [None]
  - SUDDEN CARDIAC DEATH [None]
  - MYOCARDIAL INFARCTION [None]
